FAERS Safety Report 7189890-X (Version None)
Quarter: 2010Q4

REPORT INFORMATION
  Report Type: 
  Country: None (occurrence: None)
  Receive Date: 20101123
  Receipt Date: 20100930
  Transmission Date: 20110411
  Serious: No
  Sender: FDA-Public Use
  Company Number: 019649

PATIENT
  Sex: Female
  Weight: 63.5 kg

DRUGS (7)
  1. CIMZIA [Suspect]
     Indication: CROHN'S DISEASE
     Dosage: (400 MG 1X/MONTH SUBCUTANEOUS)
     Route: 058
     Dates: start: 20100601
  2. CYMBALTA [Concomitant]
  3. ABILIFY [Concomitant]
  4. TRAZODONE [Concomitant]
  5. MIRAPEX [Concomitant]
  6. LOMOTIL /00034001/ [Concomitant]
  7. BENADRYL [Concomitant]

REACTIONS (3)
  - ABDOMINAL PAIN LOWER [None]
  - DIARRHOEA [None]
  - SEASONAL ALLERGY [None]
